FAERS Safety Report 18526137 (Version 2)
Quarter: 2021Q3

REPORT INFORMATION
  Report Type: Other
  Country: CA (occurrence: CA)
  Receive Date: 20201120
  Receipt Date: 20210817
  Transmission Date: 20211014
  Serious: Yes (Other)
  Sender: FDA-Public Use
  Company Number: CA-CELLTRION INC.-2020CA031654

PATIENT

DRUGS (5)
  1. GOLD [Concomitant]
     Active Substance: GOLD
     Indication: PRODUCT USED FOR UNKNOWN INDICATION
  2. RITUXIMAB (UNKNOWN) [Suspect]
     Active Substance: RITUXIMAB
     Indication: RHEUMATOID ARTHRITIS
     Dosage: 1000 MG
     Route: 042
  3. FOLIC ACID. [Concomitant]
     Active Substance: FOLIC ACID
  4. NAPROXEN. [Concomitant]
     Active Substance: NAPROXEN
  5. METHOTREXATE. [Concomitant]
     Active Substance: METHOTREXATE
     Indication: PRODUCT USED FOR UNKNOWN INDICATION
     Route: 048

REACTIONS (4)
  - Back pain [Recovered/Resolved]
  - Localised infection [Recovered/Resolved]
  - Pleuritic pain [Recovered/Resolved]
  - Urinary tract infection [Recovered/Resolved]
